FAERS Safety Report 5795979-X (Version None)
Quarter: 2008Q3

REPORT INFORMATION
  Report Type: 
  Country: None (occurrence: None)
  Receive Date: 20080701
  Receipt Date: 20080625
  Transmission Date: 20090109
  Serious: Yes (Other)
  Sender: FDA-Public Use
  Company Number: CA-WYE-H04714108

PATIENT
  Age: 35 Year
  Sex: Male
  Weight: 59.02 kg

DRUGS (1)
  1. ADVIL [Suspect]
     Route: 048
     Dates: start: 20080101

REACTIONS (2)
  - HAEMOPTYSIS [None]
  - OVERDOSE [None]
